FAERS Safety Report 5065634-2 (Version None)
Quarter: 2006Q3

REPORT INFORMATION
  Report Type: 
  Country: None (occurrence: None)
  Receive Date: 20060725
  Receipt Date: 20060623
  Transmission Date: 20061208
  Serious: Yes (Hospitalization)
  Sender: FDA-Public Use
  Company Number: 060109

PATIENT
  Age: 56 Year
  Sex: Female
  Weight: 71.6683 kg

DRUGS (10)
  1. NULYTELY [Suspect]
     Indication: COLONOSCOPY
     Dosage: APPROX. 2L, 1X; PO
     Route: 048
     Dates: start: 20060514
  2. PROTONIX [Concomitant]
  3. ZOLOFT [Concomitant]
  4. THYROID TAB [Concomitant]
  5. LEVOXYL [Concomitant]
  6. LIPITOR [Concomitant]
  7. PROTONIX [Concomitant]
  8. ZOLOFT [Concomitant]
  9. VITAMINS [Concomitant]
  10. ADVIL [Concomitant]

REACTIONS (19)
  - ANAEMIA [None]
  - ANXIETY [None]
  - ASTHENIA [None]
  - BACK PAIN [None]
  - BLOOD PRESSURE DECREASED [None]
  - DEPRESSED LEVEL OF CONSCIOUSNESS [None]
  - DEPRESSION [None]
  - DIARRHOEA [None]
  - DIZZINESS [None]
  - FLUSHING [None]
  - HEADACHE [None]
  - HYPERLIPIDAEMIA [None]
  - HYPOTHYROIDISM [None]
  - MIGRAINE [None]
  - PALPITATIONS [None]
  - POST PROCEDURAL COMPLICATION [None]
  - RENAL FAILURE ACUTE [None]
  - RENAL TUBULAR NECROSIS [None]
  - VOMITING [None]
